FAERS Safety Report 5718254-8 (Version None)
Quarter: 2008Q2

REPORT INFORMATION
  Report Type: 
  Country: None (occurrence: None)
  Receive Date: 20080425
  Receipt Date: 20080416
  Transmission Date: 20081010
  Serious: Yes (Hospitalization)
  Sender: FDA-Public Use
  Company Number: US-JNJFOC-20080404583

PATIENT
  Sex: Female
  Weight: 49.9 kg

DRUGS (5)
  1. REMICADE [Suspect]
     Route: 042
  2. REMICADE [Suspect]
     Indication: RHEUMATOID ARTHRITIS
     Route: 042
  3. METHOTREXATE [Concomitant]
  4. ARAVA [Concomitant]
  5. PREDNISONE [Concomitant]

REACTIONS (4)
  - LUNG NEOPLASM [None]
  - PNEUMONIA [None]
  - SKIN ULCER [None]
  - STAPHYLOCOCCAL INFECTION [None]
